FAERS Safety Report 24355637 (Version 1)
Quarter: 2024Q3

REPORT INFORMATION
  Report Type: Report from Study
  Country: DE (occurrence: DE)
  Receive Date: 20240924
  Receipt Date: 20240924
  Transmission Date: 20241017
  Serious: Yes (Hospitalization)
  Sender: INSMED
  Company Number: DE-INSMED, INC.-2024-03661-DE

PATIENT
  Age: 70 Year
  Sex: Male

DRUGS (1)
  1. ARIKAYCE [Suspect]
     Active Substance: AMIKACIN
     Indication: Atypical mycobacterial infection
     Dosage: 590 MILLIGRAM, QD
     Route: 055
     Dates: start: 20230208, end: 20240908

REACTIONS (2)
  - Hospitalisation [Unknown]
  - Therapy interrupted [Unknown]
